FAERS Safety Report 5065807-9 (Version None)
Quarter: 2006Q3

REPORT INFORMATION
  Report Type: 
  Country: None (occurrence: None)
  Receive Date: 20060725
  Receipt Date: 20060713
  Transmission Date: 20061208
  Serious: Yes (Hospitalization, Other)
  Sender: FDA-Public Use
  Company Number: HQWYE440819JAN06

PATIENT
  Age: 28 Year
  Sex: Male

DRUGS (6)
  1. RAPAMUNE [Suspect]
     Indication: PROPHYLAXIS AGAINST TRANSPLANT REJECTION
     Dosage: 9 MG 1X PER 1 DAY
     Route: 048
     Dates: start: 20050913
  2. MYCOPHENOLATE MOFETIL [Concomitant]
  3. METHYLPREDNISOLONE [Concomitant]
  4. CEFUROXIME AXETIL [Concomitant]
  5. FLUVASTATIN [Concomitant]
  6. GEMFIBROZIL [Concomitant]

REACTIONS (1)
  - KIDNEY TRANSPLANT REJECTION [None]
